FAERS Safety Report 11716656 (Version 1)
Quarter: 2015Q4

REPORT INFORMATION
  Report Type: Spontaneous
  Country: US (occurrence: US)
  Receive Date: 20151109
  Receipt Date: 20151109
  Transmission Date: 20160304
  Serious: No
  Sender: FDA-Public Use
  Company Number: US-APOPHARMA USA, INC.-2013AP003219

PATIENT
  Sex: Male
  Weight: 97.52 kg

DRUGS (2)
  1. FERRIPROX [Suspect]
     Active Substance: DEFERIPRONE
     Indication: HAEMOCHROMATOSIS
     Route: 048
     Dates: start: 20121218, end: 20130208
  2. FERRIPROX [Suspect]
     Active Substance: DEFERIPRONE
     Indication: LYMPHOPROLIFERATIVE DISORDER

REACTIONS (1)
  - Intestinal obstruction [Recovering/Resolving]
